FAERS Safety Report 24993736 (Version 1)
Quarter: 2025Q1

REPORT INFORMATION
  Report Type: Report from Study
  Country: US (occurrence: US)
  Receive Date: 20250221
  Receipt Date: 20250221
  Transmission Date: 20250409
  Serious: Yes (Life-Threatening, Hospitalization, Disabling)
  Sender: ALEXION PHARMACEUTICALS
  Company Number: US-AstraZeneca-CH-00810855A

PATIENT
  Weight: 103.39 kg

DRUGS (1)
  1. BENRALIZUMAB [Suspect]
     Active Substance: BENRALIZUMAB
     Indication: Asthma
     Dosage: 1 MILLILITER, Q4W

REACTIONS (3)
  - Dyspnoea [Unknown]
  - Gait disturbance [Unknown]
  - Product use issue [Unknown]
